FAERS Safety Report 6909251-5 (Version None)
Quarter: 2010Q3

REPORT INFORMATION
  Report Type: 
  Country: None (occurrence: None)
  Receive Date: 20100805
  Receipt Date: 20100730
  Transmission Date: 20110219
  Serious: Yes (Death)
  Sender: FDA-Public Use
  Company Number: US-CEPHALON-2010004072

PATIENT
  Age: 35 Year
  Sex: Male

DRUGS (4)
  1. ACTIQ [Suspect]
  2. DULOXETINE HYDROCHLORIDE [Suspect]
     Indication: DEPRESSION
  3. HYDROCODONE BITARTRATE [Suspect]
     Indication: PAIN
  4. ACETAMINOPHEN [Suspect]

REACTIONS (1)
  - DRUG TOXICITY [None]
